FAERS Safety Report 4825154-4 (Version None)
Quarter: 2005Q4

REPORT INFORMATION
  Report Type: 
  Country: None (occurrence: None)
  Receive Date: 20051109
  Receipt Date: 20051025
  Transmission Date: 20060501
  Serious: Yes (Death)
  Sender: FDA-Public Use
  Company Number: GBR-2005-0001944

PATIENT
  Sex: Male

DRUGS (9)
  1. UNIPHYL [Suspect]
     Dosage: 400 MG, Q12H,
  2. SPIRIVA [Suspect]
     Dosage: 18 MCG, DAILY, INHALATION
     Route: 055
     Dates: start: 20030115
  3. BECLOMETHASONE DIPROPIONATE [Suspect]
     Dosage: 2 PUFF, TID,
  4. FUROSEMIDE [Suspect]
     Dosage: 40 MG, AM,
     Dates: start: 20011129
  5. PREDNISONE [Suspect]
     Dosage: 3 TABLET, DAILY,
  6. RAMIPRIL [Suspect]
     Dosage: 2.5 MG, DAILY,
     Dates: start: 20001023
  7. ALBUTEROL [Suspect]
     Dosage: 5 MG, DAILY,
     Dates: start: 20000606
  8. WARFARIN SODIUM [Suspect]
     Dosage: 3 MG, DAILY,
     Dates: start: 20000418
  9. ALBUTEROL [Concomitant]

REACTIONS (1)
  - DEATH [None]
